FAERS Safety Report 11985503 (Version 1)
Quarter: 2016Q1

REPORT INFORMATION
  Report Type: Not Available
  Country: TR (occurrence: TR)
  Receive Date: 20160201
  Receipt Date: 20160201
  Transmission Date: 20160526
  Serious: Yes (Death)
  Sender: FDA-Public Use
  Company Number: TR-ANIPHARMA-2016-TR-000002

PATIENT
  Age: 78 Year
  Sex: Female

DRUGS (3)
  1. PAROXETINE [Suspect]
     Active Substance: PAROXETINE\PAROXETINE HYDROCHLORIDE
     Dosage: 20 MG DAILY
  2. TRIFLUOPERAZINE [Suspect]
     Active Substance: TRIFLUOPERAZINE\TRIFLUOPERAZINE HYDROCHLORIDE
     Dosage: 4 MG DAILY
  3. RISPERIDONE (NON-SPECIFIC) [Suspect]
     Active Substance: RISPERIDONE
     Dosage: 6 MG DAILY

REACTIONS (3)
  - Hydrocephalus [Fatal]
  - Neuroleptic malignant syndrome [Fatal]
  - Cardio-respiratory arrest [Fatal]
